FAERS Safety Report 16268526 (Version 1)
Quarter: 2019Q2

REPORT INFORMATION
  Report Type: Report from Study
  Country: None (occurrence: AT)
  Receive Date: 20190503
  Receipt Date: 20190503
  Transmission Date: 20190711
  Serious: Yes (Death, Other)
  Sender: FDA-Public Use
  Company Number: AT-ABBVIE-19S-009-2767345-00

PATIENT
  Age: 79 Year
  Sex: Male

DRUGS (1)
  1. DUODOPA [Suspect]
     Active Substance: CARBIDOPA\LEVODOPA
     Indication: PARKINSON^S DISEASE
     Dosage: 24HRS THERAPY??MD3,5ML;CR DAYTIME 5,7ML/H;ED2,5ML
     Route: 050
     Dates: start: 20050822

REACTIONS (2)
  - Death [Fatal]
  - Oesophageal injury [Not Recovered/Not Resolved]

NARRATIVE: CASE EVENT DATE: 2019
